FAERS Safety Report 8872241 (Version 1)
Quarter: 2012Q4

REPORT INFORMATION
  Report Type: 
  Country: FR (occurrence: FR)
  Receive Date: 20121030
  Receipt Date: 20121030
  Transmission Date: 20130627
  Serious: Yes (Other)
  Sender: FDA-Public Use
  Company Number: FR-JNJFOC-20121011636

PATIENT
  Age: 15 None
  Sex: Male
  Weight: 46.7 kg

DRUGS (7)
  1. REMICADE [Suspect]
     Indication: CROHN^S DISEASE
     Route: 042
     Dates: start: 20090918
  2. REMICADE [Suspect]
     Indication: CROHN^S DISEASE
     Route: 042
     Dates: start: 20090807
  3. REMICADE [Suspect]
     Indication: CROHN^S DISEASE
     Route: 042
     Dates: start: 20100114, end: 20100121
  4. REMICADE [Suspect]
     Indication: CROHN^S DISEASE
     Route: 042
     Dates: start: 20090821
  5. REMICADE [Suspect]
     Indication: CROHN^S DISEASE
     Route: 042
     Dates: start: 20091117
  6. COLOFOAM [Concomitant]
     Indication: CROHN^S DISEASE
     Route: 065
     Dates: start: 20090512, end: 201205
  7. SOLUPRED [Concomitant]
     Route: 065
     Dates: start: 20090926, end: 201003

REACTIONS (11)
  - Rectal haemorrhage [Unknown]
  - Frequent bowel movements [Unknown]
  - Infusion related reaction [Unknown]
  - Tachycardia [Unknown]
  - Erythema [Unknown]
  - Throat irritation [Unknown]
  - Urticaria [Unknown]
  - Cough [Unknown]
  - Rash [Unknown]
  - Vomiting [Unknown]
  - Pallor [Unknown]
